FAERS Safety Report 25548396 (Version 1)
Quarter: 2025Q3

REPORT INFORMATION
  Report Type: Spontaneous
  Country: EU (occurrence: EU)
  Receive Date: 20250714
  Receipt Date: 20250714
  Transmission Date: 20251021
  Serious: No
  Sender: BridgeBio Pharma
  Company Number: EU-BAYER-2025A080487

PATIENT
  Age: 80 Year
  Sex: Male

DRUGS (2)
  1. ACORAMIDIS [Suspect]
     Active Substance: ACORAMIDIS
     Indication: Product used for unknown indication
     Dates: end: 20250530
  2. ACORAMIDIS [Suspect]
     Active Substance: ACORAMIDIS
     Dates: start: 20250606, end: 20250608

REACTIONS (2)
  - Diarrhoea [Recovered/Resolved]
  - Diarrhoea [Unknown]

NARRATIVE: CASE EVENT DATE: 20250507
